FAERS Safety Report 4353100-9 (Version None)
Quarter: 2004Q2

REPORT INFORMATION
  Report Type: 
  Country: None (occurrence: None)
  Receive Date: 20040429
  Receipt Date: 20040416
  Transmission Date: 20050107
  Serious: No
  Sender: FDA-Public Use
  Company Number: 2004SE02195

PATIENT
  Age: 25 Year
  Sex: Male
  Weight: 84 kg

DRUGS (9)
  1. SEROQUEL [Suspect]
     Indication: SCHIZOPHRENIA
     Dosage: 800 MG BID PO
     Route: 048
     Dates: start: 20020531, end: 20040107
  2. CLOZAPINE [Suspect]
     Indication: SCHIZOPHRENIA
     Dosage: 300 MG DAILY PO
     Route: 048
     Dates: start: 20030716
  3. ANTABUSE [Concomitant]
  4. BUSPAR [Concomitant]
  5. ZOLOFT [Concomitant]
  6. RISPERDAL [Concomitant]
  7. EGAZIL DURETTER [Concomitant]
  8. NOZINAN [Concomitant]
  9. OXAZEPAM [Concomitant]

REACTIONS (2)
  - DRUG INTERACTION [None]
  - GRAND MAL CONVULSION [None]
